FAERS Safety Report 6320164-2 (Version None)
Quarter: 2009Q3

REPORT INFORMATION
  Report Type: 
  Country: None (occurrence: None)
  Receive Date: 20090822
  Receipt Date: 20081022
  Transmission Date: 20100115
  Serious: No
  Sender: FDA-Public Use
  Company Number: US-ABBOTT-08P-163-0483404-00

PATIENT
  Sex: Male
  Weight: 90.8 kg

DRUGS (6)
  1. NIASPAN [Suspect]
     Indication: HIGH DENSITY LIPOPROTEIN DECREASED
     Dates: start: 20080926
  2. DIOVAN HCT [Concomitant]
     Indication: BLOOD PRESSURE
  3. POTASSIUM CHLORIDE [Concomitant]
     Indication: DRUG USE FOR UNKNOWN INDICATION
  4. HYDROCHLOROTHIAZIDE [Concomitant]
     Indication: DIURETIC THERAPY
  5. METOPROLOL [Concomitant]
     Indication: BLOOD PRESSURE
  6. CIPROFLOXACIN [Concomitant]
     Indication: BIOPSY

REACTIONS (2)
  - FEELING HOT [None]
  - FLUSHING [None]
